FAERS Safety Report 21528699 (Version 2)
Quarter: 2022Q4

REPORT INFORMATION
  Report Type: Spontaneous
  Country: TW (occurrence: None)
  Receive Date: 20221031
  Receipt Date: 20221216
  Transmission Date: 20230112
  Serious: Yes (Other)
  Sender: FDA-Public Use
  Company Number: TW-ROCHE-3209815

PATIENT
  Age: 70 Year
  Sex: Female

DRUGS (3)
  1. ROZLYTREK [Suspect]
     Active Substance: ENTRECTINIB
     Indication: Product used for unknown indication
     Dosage: DF=CAPSULE, PER DAY
     Route: 048
     Dates: start: 20221007
  2. ROZLYTREK [Suspect]
     Active Substance: ENTRECTINIB
     Route: 065
  3. ROZLYTREK [Suspect]
     Active Substance: ENTRECTINIB
     Route: 065

REACTIONS (2)
  - Oedema peripheral [Recovered/Resolved]
  - Altered state of consciousness [Recovered/Resolved]
